FAERS Safety Report 4988509-3 (Version None)
Quarter: 2006Q2

REPORT INFORMATION
  Report Type: 
  Country: None (occurrence: None)
  Receive Date: 20060426
  Receipt Date: 20060410
  Transmission Date: 20061013
  Serious: Yes (Death)
  Sender: FDA-Public Use
  Company Number: US200604001723

PATIENT
  Age: 47 Year
  Sex: Female

DRUGS (5)
  1. XIGRIS [Suspect]
     Indication: PNEUMONIA
     Dosage: INTRAVENOUS
     Route: 042
     Dates: start: 20060407
  2. CEFTIN [Concomitant]
  3. LEVAQUIN [Concomitant]
  4. PROTONIX [Concomitant]
  5. LACTINEX (LACTOBACILLUS ACIDOPHILLUS, LACTOBACILLUS BULGARICUS) [Concomitant]

REACTIONS (1)
  - DEATH [None]
